FAERS Safety Report 25969753 (Version 2)
Quarter: 2025Q4

REPORT INFORMATION
  Report Type: Spontaneous
  Country: US (occurrence: US)
  Receive Date: 20251028
  Receipt Date: 20251029
  Transmission Date: 20260117
  Serious: No
  Sender: VERTEX
  Company Number: US-VERTEX PHARMACEUTICALS-2025-017388

PATIENT
  Sex: Female

DRUGS (2)
  1. SUZETRIGINE [Suspect]
     Active Substance: SUZETRIGINE
     Indication: Pain
     Dosage: 100 MG TABLET
     Route: 048
  2. SUZETRIGINE [Suspect]
     Active Substance: SUZETRIGINE
     Indication: Osteoarthritis
     Dosage: 1 PILL (50MG)
     Route: 048

REACTIONS (2)
  - Off label use [Unknown]
  - Somnolence [Not Recovered/Not Resolved]
